FAERS Safety Report 12483452 (Version 1)
Quarter: 2016Q2

REPORT INFORMATION
  Report Type: Spontaneous
  Country: AU (occurrence: AU)
  Receive Date: 20160621
  Receipt Date: 20160621
  Transmission Date: 20160815
  Serious: Yes (Hospitalization, Other)
  Sender: FDA-Public Use
  Company Number: AU-ALEMBIC PHARMACUETICALS LIMITED-2016SCAL000478

PATIENT

DRUGS (1)
  1. CLONIDINE HYDROCHLORIDE. [Suspect]
     Active Substance: CLONIDINE HYDROCHLORIDE
     Indication: PRODUCT USED FOR UNKNOWN INDICATION
     Dosage: MEDIAN DOSE OF 2000 MCG (400-15,000 MCG)

REACTIONS (9)
  - Miosis [Unknown]
  - Bradycardia [Not Recovered/Not Resolved]
  - Hypotension [Unknown]
  - Coma [Not Recovered/Not Resolved]
  - Depressed level of consciousness [Not Recovered/Not Resolved]
  - Overdose [Not Recovered/Not Resolved]
  - Hypothermia [Unknown]
  - Toxicity to various agents [Not Recovered/Not Resolved]
  - Hypertension [Unknown]
